FAERS Safety Report 5715291-4 (Version None)
Quarter: 2008Q2

REPORT INFORMATION
  Report Type: 
  Country: None (occurrence: None)
  Receive Date: 20080423
  Receipt Date: 20080415
  Transmission Date: 20081010
  Serious: Yes (Hospitalization, Other)
  Sender: FDA-Public Use
  Company Number: US-PFIZER INC-2008024871

PATIENT
  Sex: Female

DRUGS (2)
  1. ZYVOX [Suspect]
     Dosage: DAILY DOSE:600MG
     Route: 048
     Dates: start: 20061128, end: 20061201
  2. VIOXX [Suspect]

REACTIONS (1)
  - CELLULITIS [None]
